FAERS Safety Report 8486642-5 (Version None)
Quarter: 2012Q3

REPORT INFORMATION
  Report Type: 
  Country: None (occurrence: None)
  Receive Date: 20120703
  Receipt Date: 20100805
  Transmission Date: 20120928
  Serious: Yes (Other)
  Sender: FDA-Public Use
  Company Number: PHBS2007JP08764

PATIENT
  Sex: Male
  Weight: 60 kg

DRUGS (18)
  1. REMINARON [Concomitant]
     Indication: DISSEMINATED INTRAVASCULAR COAGULATION
     Dosage: 150 MG, QD
     Route: 042
     Dates: start: 20070419, end: 20070504
  2. MINOPHAGEN C [Concomitant]
     Indication: HEPATIC FUNCTION ABNORMAL
     Dosage: 60 ML, QD
     Route: 042
     Dates: start: 20070422, end: 20070504
  3. IMATINIB MESYLATE [Suspect]
     Indication: ACUTE LYMPHOCYTIC LEUKAEMIA
     Dosage: 600 MG, QD
     Route: 048
     Dates: start: 20070430, end: 20070520
  4. PREDNISOLONE [Suspect]
     Dosage: UNK UKN, UNK
  5. STEROIDS NOS [Concomitant]
     Dosage: UNK UKN, UNK
     Route: 065
     Dates: start: 20070419
  6. GRAN [Concomitant]
     Indication: ACUTE LYMPHOCYTIC LEUKAEMIA
     Dosage: 150 UG, QD
     Route: 058
     Dates: start: 20070429, end: 20070511
  7. ONCOVIN [Suspect]
     Indication: ACUTE LYMPHOCYTIC LEUKAEMIA
     Dosage: 2 MG, QD
     Route: 042
     Dates: start: 20070426, end: 20070517
  8. DAUNORUBICIN HYDROCHLORIDE [Suspect]
     Indication: ACUTE LYMPHOCYTIC LEUKAEMIA
     Dosage: 100 MG, QD
     Route: 042
     Dates: start: 20070426, end: 20070428
  9. CYCLOPHOSPHAMIDE [Suspect]
     Indication: ACUTE LYMPHOCYTIC LEUKAEMIA
     Dosage: 2100 MG, QD
     Route: 042
     Dates: start: 20070426, end: 20070426
  10. OMEGACIN [Concomitant]
     Indication: NEUTROPENIA
     Dosage: 0.9 G, QD
     Route: 042
     Dates: start: 20070417, end: 20070512
  11. IMATINIB MESYLATE [Suspect]
     Dosage: 400 MG, DAILY
     Route: 048
     Dates: start: 20080430, end: 20080728
  12. SOLU-MEDROL [Concomitant]
     Indication: ACUTE LYMPHOCYTIC LEUKAEMIA
     Dosage: 50 MG, UNK
     Route: 041
     Dates: start: 20070615, end: 20070725
  13. NEORAL [Concomitant]
     Indication: HEPATIC FUNCTION ABNORMAL
     Dosage: 100 MG, UNK
     Route: 048
     Dates: start: 20080212, end: 20080530
  14. CYTARABINE [Concomitant]
     Indication: ACUTE LYMPHOCYTIC LEUKAEMIA
     Dosage: 40 MG, UNK
     Dates: start: 20070614, end: 20070723
  15. ITRACONAZOLE [Concomitant]
     Indication: HEPATIC FUNCTION ABNORMAL
     Dosage: 100 MG, UNK
     Route: 048
     Dates: start: 20080212, end: 20080530
  16. PREDNISOLONE SODIUM SUCCINATE INJ [Concomitant]
     Indication: ACUTE LYMPHOCYTIC LEUKAEMIA
     Dosage: 100 MG, QD
     Route: 048
     Dates: start: 20070419, end: 20070516
  17. METHOTREXATE [Concomitant]
     Indication: ACUTE LYMPHOCYTIC LEUKAEMIA
     Dosage: 1.75 G, UNK
     Route: 041
     Dates: start: 20070614, end: 20070723
  18. ALLOPURINOL [Concomitant]
     Indication: HEPATIC FUNCTION ABNORMAL
     Dosage: 100 MG, UNK
     Route: 048
     Dates: start: 20080212, end: 20080530

REACTIONS (3)
  - PNEUMATOSIS INTESTINALIS [None]
  - LEUKAEMIA RECURRENT [None]
  - FLATULENCE [None]
